FAERS Safety Report 12774524 (Version 1)
Quarter: 2016Q3

REPORT INFORMATION
  Report Type: Spontaneous
  Country: ES (occurrence: ES)
  Receive Date: 20160923
  Receipt Date: 20160923
  Transmission Date: 20161109
  Serious: Yes (Other)
  Sender: FDA-Public Use
  Company Number: ES-BRISTOL-MYERS SQUIBB COMPANY-BMS-2016-077441

PATIENT
  Age: 38 Year
  Sex: Male

DRUGS (1)
  1. ABILIFY [Suspect]
     Active Substance: ARIPIPRAZOLE
     Indication: SCHIZOPHRENIA
     Dosage: 30 MG, QD
     Route: 065

REACTIONS (9)
  - Depression [Unknown]
  - Tobacco user [Unknown]
  - Blood cholesterol increased [Unknown]
  - Fatigue [Unknown]
  - Weight increased [Unknown]
  - Suicidal ideation [Unknown]
  - Somnolence [Unknown]
  - Hangover [Unknown]
  - Photophobia [Unknown]
